FAERS Safety Report 7136117-0 (Version None)
Quarter: 2010Q4

REPORT INFORMATION
  Report Type: 
  Country: None (occurrence: None)
  Receive Date: 20101205
  Receipt Date: 20100330
  Transmission Date: 20110411
  Serious: No
  Sender: FDA-Public Use
  Company Number: US-TYCO HEALTHCARE/MALLINCKRODT-T201001011

PATIENT
  Sex: Female

DRUGS (2)
  1. TECHNESCAN [Suspect]
     Dosage: UNK UNK, SINGLE
     Dates: start: 20100330, end: 20100330
  2. ULTRA-TECHNEKOW [Suspect]
     Dosage: UNK UNK, SINGLE
     Dates: start: 20100330, end: 20100330

REACTIONS (2)
  - EYE PRURITUS [None]
  - PRURITUS [None]
